FAERS Safety Report 19222352 (Version 1)
Quarter: 2021Q2

REPORT INFORMATION
  Report Type: Spontaneous
  Country: US (occurrence: US)
  Receive Date: 20210506
  Receipt Date: 20210506
  Transmission Date: 20210717
  Serious: No
  Sender: FDA-Public Use
  Company Number: None

PATIENT
  Age: 97 Year
  Sex: Male

DRUGS (1)
  1. DEXAMETHASONE (DEXAMETHASONE 2MG TAB) [Suspect]
     Active Substance: DEXAMETHASONE
     Dates: start: 20210421, end: 20210502

REACTIONS (2)
  - Hyponatraemia [None]
  - Confusional state [None]

NARRATIVE: CASE EVENT DATE: 20210501
